FAERS Safety Report 5125175-0 (Version None)
Quarter: 2006Q4

REPORT INFORMATION
  Report Type: 
  Country: None (occurrence: None)
  Receive Date: 20061010
  Receipt Date: 20061010
  Transmission Date: 20070319
  Serious: Yes (Hospitalization)
  Sender: FDA-Public Use
  Company Number: None

PATIENT
  Age: 62 Year
  Sex: Male

DRUGS (5)
  1. ASPIRIN [Suspect]
     Indication: PAIN
  2. FLUOXETINE [Concomitant]
  3. FOSINOPRIL SODIUM [Concomitant]
  4. HYDROXYBINE [Concomitant]
  5. ATENOLOL [Concomitant]

REACTIONS (1)
  - DUODENAL ULCER [None]
